FAERS Safety Report 15096842 (Version 1)
Quarter: 2018Q3

REPORT INFORMATION
  Report Type: Spontaneous
  Country: JP (occurrence: JP)
  Receive Date: 20180702
  Receipt Date: 20180702
  Transmission Date: 20181010
  Serious: Yes (Hospitalization)
  Sender: FDA-Public Use
  Company Number: JP-PFIZER INC-2018257172

PATIENT

DRUGS (1)
  1. GENOTROPIN TC 5.3MG [Suspect]
     Active Substance: SOMATROPIN
     Dosage: UNK
     Dates: start: 201604

REACTIONS (1)
  - Chronic sinusitis [Unknown]
